FAERS Safety Report 5489802-0 (Version None)
Quarter: 2007Q4

REPORT INFORMATION
  Report Type: 
  Country: None (occurrence: None)
  Receive Date: 20071018
  Receipt Date: 20071008
  Transmission Date: 20080405
  Serious: Yes (Hospitalization, Other)
  Sender: FDA-Public Use
  Company Number: CL-PFIZER INC-2007084501

PATIENT
  Sex: Female

DRUGS (2)
  1. LIPITOR [Suspect]
     Dosage: DAILY DOSE:80MG-FREQ:DAILY
     Route: 048
  2. ASPIRIN [Suspect]
     Route: 048
     Dates: start: 20071001, end: 20071008

REACTIONS (3)
  - DERMATITIS ALLERGIC [None]
  - MUSCLE RIGIDITY [None]
  - OEDEMA PERIPHERAL [None]
